FAERS Safety Report 11661646 (Version 1)
Quarter: 2015Q4

REPORT INFORMATION
  Report Type: Spontaneous
  Country: US (occurrence: US)
  Receive Date: 20151026
  Receipt Date: 20151026
  Transmission Date: 20160304
  Serious: No
  Sender: FDA-Public Use
  Company Number: US-PFIZER INC-2015356669

PATIENT
  Age: 63 Year
  Sex: Female

DRUGS (7)
  1. CARISOPRODOL. [Concomitant]
     Active Substance: CARISOPRODOL
     Dosage: 350 MG, UNK
  2. VITAMIN B12 [Concomitant]
     Active Substance: CYANOCOBALAMIN
     Dosage: 1000 ?G, UNK
  3. ASPIRIN (E.C.) [Concomitant]
     Active Substance: ASPIRIN
     Dosage: 81 MG, UNK
  4. HYDROCODONE BITARTRATE/PARACETAMOL [Concomitant]
     Dosage: 5 MG-32
  5. XELJANZ [Suspect]
     Active Substance: TOFACITINIB CITRATE
     Indication: RHEUMATOID ARTHRITIS
     Dosage: 5 MG, 2X/DAY
     Route: 048
     Dates: start: 201507
  6. CALCIUM CITRATE [Concomitant]
     Active Substance: CALCIUM CITRATE
     Dosage: 250 MG, UNK
  7. OMEPRAZOLE. [Concomitant]
     Active Substance: OMEPRAZOLE
     Dosage: 40 MG, UNK

REACTIONS (1)
  - Weight increased [Unknown]
